FAERS Safety Report 11097671 (Version 1)
Quarter: 2015Q2

REPORT INFORMATION
  Report Type: Spontaneous
  Country: NL (occurrence: NL)
  Receive Date: 20150507
  Receipt Date: 20150507
  Transmission Date: 20150821
  Serious: Yes (Hospitalization, Congenital Anomaly)
  Sender: FDA-Public Use
  Company Number: NL-WATSON-2015-09137

PATIENT
  Sex: Male
  Weight: 2.8 kg

DRUGS (1)
  1. SERTRALINE ACTAVIS [Suspect]
     Active Substance: SERTRALINE HYDROCHLORIDE
     Indication: AGORAPHOBIA
     Dosage: 200 MG, DAILY (1 KEER PER DAG 2 STUK(S), ENGLISH: 1 TIME PER DAY 2 PIECE (S))
     Route: 064
     Dates: start: 2014

REACTIONS (1)
  - Cerebral haemorrhage neonatal [Unknown]
